FAERS Safety Report 18101646 (Version 1)
Quarter: 2020Q3

REPORT INFORMATION
  Report Type: Report from Study
  Country: CA (occurrence: CA)
  Receive Date: 20200801
  Receipt Date: 20200801
  Transmission Date: 20201103
  Serious: Yes (Hospitalization)
  Sender: FDA-Public Use
  Company Number: CA-HLS-202000033

PATIENT
  Age: 31 Year
  Sex: Male
  Weight: 158 kg

DRUGS (7)
  1. LITHIUM. [Concomitant]
     Active Substance: LITHIUM
     Route: 048
  2. PREGABALIN. [Concomitant]
     Active Substance: PREGABALIN
     Dosage: 50 MG QAM?75 MG QHS
     Route: 048
  3. AMOXICILLIN?CLAVULIN [Concomitant]
     Dosage: 875MG?125MG AT BREAKFAST AND SUPPER
     Route: 065
     Dates: start: 20200205
  4. CLOZARIL [Suspect]
     Active Substance: CLOZAPINE
     Dosage: 300MG + 2 X 2 TABLETS OF 25MG IN THE?MORNING AND AT MID?DAY
     Route: 048
     Dates: start: 20141028
  5. CLOMIPRAMINE [Concomitant]
     Active Substance: CLOMIPRAMINE
     Dosage: 100 MG QAM?50 MG Q NOON?100 MG QHS
     Route: 048
  6. DIVALPROEX [Concomitant]
     Active Substance: DIVALPROEX SODIUM
     Route: 048
  7. QUETIAPINE. [Concomitant]
     Active Substance: QUETIAPINE
     Route: 048

REACTIONS (3)
  - Rales [Unknown]
  - Body temperature increased [Recovered/Resolved]
  - Productive cough [Unknown]
